FAERS Safety Report 16189039 (Version 1)
Quarter: 2019Q2

REPORT INFORMATION
  Report Type: Spontaneous
  Country: US (occurrence: US)
  Receive Date: 20190308
  Receipt Date: 20190308
  Transmission Date: 20190711
  Serious: No
  Sender: FDA-Public Use
  Company Number: None

PATIENT

DRUGS (1)
  1. NITROFURANTOIN MONO 100MG CAPAMN-GENERIC FOR MACROBID 100MG CAP [Suspect]
     Active Substance: NITROFURANTOIN
     Indication: CYSTITIS
     Dosage: ?          OTHER STRENGTH:100 MG;QUANTITY:14 DF DOSAGE FORM;?
     Route: 048
     Dates: start: 20190202

REACTIONS (5)
  - Fatigue [None]
  - Hypophagia [None]
  - Dizziness [None]
  - Asthenia [None]
  - Tremor [None]

NARRATIVE: CASE EVENT DATE: 20190203
